FAERS Safety Report 7198675-X (Version None)
Quarter: 2010Q4

REPORT INFORMATION
  Report Type: 
  Country: None (occurrence: None)
  Receive Date: 20101227
  Receipt Date: 20101216
  Transmission Date: 20110411
  Serious: Yes (Hospitalization)
  Sender: FDA-Public Use
  Company Number: FR-JNJFOC-20101206125

PATIENT
  Age: 51 Year
  Sex: Female

DRUGS (2)
  1. TAVANIC [Suspect]
     Indication: PNEUMONIA
     Route: 065
  2. CLAFORAN [Suspect]
     Indication: LUNG DISORDER
     Route: 065

REACTIONS (2)
  - QUADRIPLEGIA [None]
  - RHABDOMYOLYSIS [None]
